FAERS Safety Report 24389904 (Version 3)
Quarter: 2024Q4

REPORT INFORMATION
  Report Type: Spontaneous
  Country: CA (occurrence: CA)
  Receive Date: 20241003
  Receipt Date: 20241024
  Transmission Date: 20250115
  Serious: Yes (Hospitalization)
  Sender: AMGEN
  Company Number: CA-PFIZER INC-202400262303

PATIENT
  Age: 58 Year
  Sex: Female

DRUGS (2)
  1. ENBREL [Suspect]
     Active Substance: ETANERCEPT
     Indication: Rheumatoid arthritis
     Dosage: 50 MG, WEEKLY
     Route: 058
     Dates: start: 2017, end: 202409
  2. PREDNISONE [Concomitant]
     Active Substance: PREDNISONE
     Dosage: 20 MG, 1X/DAY (TAPERING DOSE)
     Dates: start: 20240914

REACTIONS (3)
  - Condition aggravated [Not Recovered/Not Resolved]
  - Treatment failure [Unknown]
  - Quality of life decreased [Not Recovered/Not Resolved]
